FAERS Safety Report 5333017-3 (Version None)
Quarter: 2007Q1

REPORT INFORMATION
  Report Type: 
  Country: None (occurrence: None)
  Receive Date: 20070306
  Receipt Date: 20060605
  Transmission Date: 20070707
  Serious: Yes (Hospitalization)
  Sender: FDA-Public Use
  Company Number: A03200603554

PATIENT
  Age: 51 Year
  Sex: Male
  Weight: 111.5849 kg

DRUGS (3)
  1. PLAVIX [Suspect]
     Indication: STENT PLACEMENT
     Dosage: 75 MG QD ORAL
     Route: 048
     Dates: start: 20040501
  2. SIMVASTATIN [Concomitant]
  3. ACETYLSALICYLIC ACID SRT [Concomitant]

REACTIONS (2)
  - CHEST PAIN [None]
  - HAEMATOMA [None]
